APPROVED DRUG PRODUCT: ZANOSAR
Active Ingredient: STREPTOZOCIN
Strength: 1GM/VIAL
Dosage Form/Route: INJECTABLE;INJECTION
Application: N050577 | Product #001
Applicant: TEVA PHARMACEUTICALS USA
Approved: May 7, 1982 | RLD: Yes | RS: No | Type: DISCN